FAERS Safety Report 12349999 (Version 1)
Quarter: 2016Q2

REPORT INFORMATION
  Report Type: Spontaneous
  Country: US (occurrence: None)
  Receive Date: 20160509
  Receipt Date: 20160509
  Transmission Date: 20160815
  Serious: Yes (Other)
  Sender: FDA-Public Use
  Company Number: None

PATIENT
  Age: 50 Year
  Sex: Female
  Weight: 82.56 kg

DRUGS (6)
  1. METAXALONE 800 MG TABLET, 800 MG ANNEAL PHARMACE [Suspect]
     Active Substance: METAXALONE
     Indication: PAIN
     Route: 048
     Dates: start: 20160408, end: 20160408
  2. CYTOMEL [Concomitant]
     Active Substance: LIOTHYRONINE SODIUM
  3. PROAIR HFA [Concomitant]
     Active Substance: ALBUTEROL SULFATE
  4. SYNTHROID [Concomitant]
     Active Substance: LEVOTHYROXINE SODIUM
  5. MOTRIN [Concomitant]
     Active Substance: IBUPROFEN
  6. METAXALONE 800 MG TABLET, 800 MG ANNEAL PHARMACE [Suspect]
     Active Substance: METAXALONE
     Indication: MUSCLE TIGHTNESS
     Route: 048
     Dates: start: 20160408, end: 20160408

REACTIONS (1)
  - Throat tightness [None]

NARRATIVE: CASE EVENT DATE: 20160408
